FAERS Safety Report 10102414 (Version 2)
Quarter: 2014Q2

REPORT INFORMATION
  Report Type: Spontaneous
  Country: US (occurrence: US)
  Receive Date: 20140424
  Receipt Date: 20140521
  Transmission Date: 20141212
  Serious: No
  Sender: FDA-Public Use
  Company Number: US-009507513-1404USA011302

PATIENT
  Age: 79 Year
  Sex: Female
  Weight: 77.98 kg

DRUGS (6)
  1. OXYTROL FOR WOMEN [Suspect]
     Indication: URINARY INCONTINENCE
     Dosage: UNK, UNKNOWN
     Route: 062
     Dates: start: 20140409
  2. BUMETANIDE [Concomitant]
     Indication: BLOOD PRESSURE
     Dosage: 1 MG, UNKNOWN
  3. DICLOFENAC [Concomitant]
     Indication: GASTROINTESTINAL DISORDER
     Dosage: 75 MG, UNKNOWN
  4. DITROPAN [Concomitant]
     Indication: BLADDER DISORDER
     Dosage: 4 MG, UNKNOWN
  5. DOXAZOSIN MESYLATE [Concomitant]
     Indication: BLOOD PRESSURE
     Dosage: 4 MG, UNKNOWN
  6. LEVOTHYROXINE SODIUM [Concomitant]
     Indication: THYROID DISORDER
     Dosage: 100 MG, UNKNOWN

REACTIONS (5)
  - Pain [Not Recovered/Not Resolved]
  - Pruritus [Not Recovered/Not Resolved]
  - Inappropriate schedule of drug administration [Unknown]
  - Product quality issue [Unknown]
  - Product adhesion issue [Unknown]
